FAERS Safety Report 10060017 (Version 4)
Quarter: 2014Q2

REPORT INFORMATION
  Report Type: Spontaneous
  Country: JP (occurrence: JP)
  Receive Date: 20140404
  Receipt Date: 20140515
  Transmission Date: 20141212
  Serious: Yes (Death, Disabling)
  Sender: FDA-Public Use
  Company Number: JP-UCBSA-116671

PATIENT
  Age: 68 Year
  Sex: Male

DRUGS (7)
  1. E KEPPRA [Suspect]
     Indication: CONVULSION
     Route: 048
     Dates: start: 20131219, end: 20140304
  2. E KEPPRA [Suspect]
     Indication: CONVULSION
     Route: 048
     Dates: start: 20140305, end: 20140325
  3. TEGRETOL [Suspect]
     Dosage: DAILY DOSE: 300 MG
     Route: 048
  4. NAIXAN [Suspect]
     Route: 048
  5. AMLODIPINE [Suspect]
     Route: 048
  6. MOSAPRIDE CITRATE HYDRATE [Suspect]
     Route: 048
  7. POTASSIUM L-ASPARTATE [Suspect]

REACTIONS (2)
  - Haemorrhagic diathesis [Fatal]
  - Facial spasm [Unknown]
